FAERS Safety Report 7433631-5 (Version None)
Quarter: 2011Q2

REPORT INFORMATION
  Report Type: 
  Country: None (occurrence: None)
  Receive Date: 20110422
  Receipt Date: 20110412
  Transmission Date: 20111010
  Serious: Yes (Other)
  Sender: FDA-Public Use
  Company Number: US-MERCK-1101USA03582

PATIENT
  Age: 72 Year
  Sex: Female

DRUGS (3)
  1. FOSAMAX [Suspect]
     Indication: OSTEOPOROSIS
     Route: 048
     Dates: start: 20000101, end: 20100101
  2. CALTRATE [Concomitant]
     Route: 065
     Dates: start: 20010101
  3. VITAMINS (UNSPECIFIED) [Concomitant]
     Route: 065
     Dates: start: 19860101

REACTIONS (5)
  - CHEST PAIN [None]
  - FEMUR FRACTURE [None]
  - IDIOPATHIC THROMBOCYTOPENIC PURPURA [None]
  - ENDODONTIC PROCEDURE [None]
  - DIABETES MELLITUS [None]
